FAERS Safety Report 5054794-5 (Version None)
Quarter: 2006Q3

REPORT INFORMATION
  Report Type: 
  Country: None (occurrence: None)
  Receive Date: 20060719
  Receipt Date: 20060620
  Transmission Date: 20061208
  Serious: Yes (Hospitalization)
  Sender: FDA-Public Use
  Company Number: PHBS2006FR09401

PATIENT
  Age: 33 Year
  Sex: Female

DRUGS (3)
  1. PARLODEL [Suspect]
     Indication: SUPPRESSED LACTATION
     Dosage: 1.25 MG, QD
     Route: 048
  2. PARLODEL [Suspect]
     Dosage: 1.25 MG, BID
     Route: 048
  3. PARLODEL [Suspect]
     Dosage: 2.5 MG, BID
     Route: 048

REACTIONS (15)
  - ABDOMINAL PAIN [None]
  - AFFECT LABILITY [None]
  - ANXIETY [None]
  - DELUSIONAL DISORDER, PERSECUTORY TYPE [None]
  - DISINHIBITION [None]
  - EMOTIONAL DISORDER [None]
  - FLIGHT OF IDEAS [None]
  - INAPPROPRIATE AFFECT [None]
  - INSOMNIA [None]
  - MANIA [None]
  - MOOD ALTERED [None]
  - PSYCHOMOTOR HYPERACTIVITY [None]
  - SPEECH DISORDER [None]
  - SUICIDAL IDEATION [None]
  - TACHYPHRENIA [None]
